FAERS Safety Report 7156528-7 (Version None)
Quarter: 2010Q4

REPORT INFORMATION
  Report Type: 
  Country: None (occurrence: None)
  Receive Date: 20101214
  Receipt Date: 20091117
  Transmission Date: 20110411
  Serious: No
  Sender: FDA-Public Use
  Company Number: US-ASTRAZENECA-2009SE27011

PATIENT
  Age: 75 Year
  Sex: Female
  Weight: 131.5 kg

DRUGS (12)
  1. CRESTOR [Suspect]
     Route: 048
     Dates: start: 20091107
  2. VICODIN [Concomitant]
     Indication: PAIN
  3. ATACAND [Concomitant]
     Indication: HYPERTENSION
  4. GLIMEPIRIDE [Concomitant]
     Indication: DIABETES MELLITUS
  5. ASPIRIN [Concomitant]
  6. GABAPENTIN [Concomitant]
     Indication: PAIN
  7. METFORMIN [Concomitant]
     Indication: DIABETES MELLITUS
  8. FEXOFENADINE HCL [Concomitant]
     Indication: HYPERSENSITIVITY
  9. TOPROL-XL [Concomitant]
     Indication: HYPERTENSION
  10. I CAP [Concomitant]
     Indication: EYE IRRIGATION
  11. VITAMINS D [Concomitant]
  12. VITAMINS C [Concomitant]

REACTIONS (1)
  - JOINT SWELLING [None]
